FAERS Safety Report 11905201 (Version 1)
Quarter: 2016Q1

REPORT INFORMATION
  Report Type: Spontaneous
  Country: US (occurrence: US)
  Receive Date: 20160109
  Receipt Date: 20160109
  Transmission Date: 20160526
  Serious: Yes (Other)
  Sender: FDA-Public Use
  Company Number: US-JNJFOC-20151223435

PATIENT
  Sex: Male

DRUGS (3)
  1. RISPERDAL [Suspect]
     Active Substance: RISPERIDONE
     Indication: OBSESSIVE-COMPULSIVE DISORDER
     Route: 048
     Dates: start: 200606
  2. RISPERDAL [Suspect]
     Active Substance: RISPERIDONE
     Indication: TOURETTE^S DISORDER
     Route: 048
     Dates: start: 200606
  3. RISPERDAL [Suspect]
     Active Substance: RISPERIDONE
     Indication: ATTENTION DEFICIT/HYPERACTIVITY DISORDER
     Route: 048
     Dates: start: 200606

REACTIONS (4)
  - Product use issue [Unknown]
  - Abnormal weight gain [Unknown]
  - Off label use [Unknown]
  - Gynaecomastia [Unknown]
